FAERS Safety Report 12647789 (Version 1)
Quarter: 2016Q3

REPORT INFORMATION
  Report Type: Spontaneous
  Country: CA (occurrence: CA)
  Receive Date: 20160812
  Receipt Date: 20160812
  Transmission Date: 20161109
  Serious: Yes (Life-Threatening, Hospitalization)
  Sender: FDA-Public Use
  Company Number: CA-ASTRAZENECA-2016SE84542

PATIENT
  Age: 57 Year
  Sex: Female

DRUGS (6)
  1. SYNTHROID [Concomitant]
     Active Substance: LEVOTHYROXINE SODIUM
  2. CEPHALEXIN. [Concomitant]
     Active Substance: CEPHALEXIN
  3. GLICLAZIDE MR [Concomitant]
     Active Substance: GLICLAZIDE
  4. ROSUVASTATIN. [Concomitant]
     Active Substance: ROSUVASTATIN
  5. FORXIGA [Suspect]
     Active Substance: DAPAGLIFLOZIN
     Indication: DIABETES MELLITUS
     Route: 048
  6. MAVIK [Concomitant]
     Active Substance: TRANDOLAPRIL

REACTIONS (2)
  - Infection [Recovered/Resolved]
  - Pancreatitis [Recovered/Resolved]
